FAERS Safety Report 5915205-8 (Version None)
Quarter: 2008Q4

REPORT INFORMATION
  Report Type: 
  Country: None (occurrence: None)
  Receive Date: 20081010
  Receipt Date: 20080929
  Transmission Date: 20090506
  Serious: Yes (Hospitalization)
  Sender: FDA-Public Use
  Company Number: FR-JNJFOC-20081001898

PATIENT
  Sex: Male

DRUGS (2)
  1. ZALDIAR [Suspect]
     Indication: BACK PAIN
     Dosage: 3 TABLETS A WEEK
     Route: 048
  2. DICLOFENAC [Suspect]
     Indication: BACK PAIN
     Route: 048

REACTIONS (2)
  - CYTOLYTIC HEPATITIS [None]
  - HEPATITIS CHOLESTATIC [None]
